FAERS Safety Report 4620717-3 (Version None)
Quarter: 2005Q1

REPORT INFORMATION
  Report Type: 
  Country: None (occurrence: None)
  Receive Date: 20050325
  Receipt Date: 20050316
  Transmission Date: 20050727
  Serious: No
  Sender: FDA-Public Use
  Company Number: 2005UW01489

PATIENT
  Age: 57 Year
  Sex: Male
  Weight: 94.3 kg

DRUGS (3)
  1. CRESTOR [Suspect]
     Indication: BLOOD CHOLESTEROL INCREASED
     Dosage: 10 MG PO
     Route: 048
     Dates: start: 20040801, end: 20041101
  2. BENICAR [Concomitant]
  3. ADVANDAMET [Concomitant]

REACTIONS (8)
  - ANAL FISSURE [None]
  - ANORECTAL DISORDER [None]
  - CONSTIPATION [None]
  - FATIGUE [None]
  - HAEMORRHOIDS [None]
  - MUSCLE SPASMS [None]
  - MYALGIA [None]
  - PROCTALGIA [None]
